FAERS Safety Report 5126858-9 (Version None)
Quarter: 2006Q4

REPORT INFORMATION
  Report Type: 
  Country: None (occurrence: None)
  Receive Date: 20061013
  Receipt Date: 20061003
  Transmission Date: 20070319
  Serious: Yes (Other)
  Sender: FDA-Public Use
  Company Number: BR-ROCHE-466105

PATIENT
  Sex: Female

DRUGS (2)
  1. XENICAL [Suspect]
     Route: 048
  2. TRAMADOL HCL [Concomitant]
     Route: 048

REACTIONS (1)
  - SPINAL DISORDER [None]
